FAERS Safety Report 21354599 (Version 1)
Quarter: 2022Q3

REPORT INFORMATION
  Report Type: Report from Study
  Country: PL (occurrence: None)
  Receive Date: 20220920
  Receipt Date: 20220920
  Transmission Date: 20221027
  Serious: Yes (Hospitalization)
  Sender: FDA-Public Use
  Company Number: PL-ROCHE-3170542

PATIENT
  Age: 0 Year
  Sex: Female
  Weight: 1.7 kg

DRUGS (13)
  1. OCRELIZUMAB [Suspect]
     Active Substance: OCRELIZUMAB
     Indication: Product used for unknown indication
     Route: 064
     Dates: start: 20210414, end: 20210427
  2. OCRELIZUMAB [Suspect]
     Active Substance: OCRELIZUMAB
     Route: 064
     Dates: start: 20210427, end: 20210427
  3. VITAMIN D3 [Concomitant]
     Active Substance: CHOLECALCIFEROL
     Indication: Product used for unknown indication
     Route: 064
     Dates: start: 2014
  4. IBUPROFEN [Concomitant]
     Active Substance: IBUPROFEN
     Indication: Product used for unknown indication
     Route: 064
     Dates: start: 2000
  5. HERPEX (POLAND) [Concomitant]
     Indication: Product used for unknown indication
     Route: 064
     Dates: start: 20210427, end: 20210430
  6. HERPEX (POLAND) [Concomitant]
     Route: 061
     Dates: start: 20210601, end: 20210615
  7. ACETAMINOPHEN [Concomitant]
     Active Substance: ACETAMINOPHEN
     Indication: Product used for unknown indication
     Dates: start: 20210414, end: 20210414
  8. ACETAMINOPHEN [Concomitant]
     Active Substance: ACETAMINOPHEN
     Dates: start: 20210427, end: 20210427
  9. ACARD [Concomitant]
     Indication: Product used for unknown indication
     Route: 064
     Dates: start: 20211023
  10. DUPHASTON [Concomitant]
     Active Substance: DYDROGESTERONE
     Indication: Product used for unknown indication
     Route: 064
     Dates: start: 20211023
  11. AMOXICILLIN [Concomitant]
     Active Substance: AMOXICILLIN
     Indication: Product used for unknown indication
     Route: 064
     Dates: start: 20211221, end: 20211225
  12. COMIRNATY [Concomitant]
     Active Substance: TOZINAMERAN
     Dosage: 1 UNIT
     Route: 064
     Dates: start: 20211112, end: 20211112
  13. ENOXAPARIN SODIUM [Concomitant]
     Active Substance: ENOXAPARIN SODIUM
     Indication: Product used for unknown indication
     Route: 064
     Dates: start: 20211125

REACTIONS (3)
  - Hyperbilirubinaemia [Recovered/Resolved]
  - Anaemia [Unknown]
  - Foetal exposure during pregnancy [Unknown]

NARRATIVE: CASE EVENT DATE: 20220306
